FAERS Safety Report 7854129-6 (Version None)
Quarter: 2011Q4

REPORT INFORMATION
  Report Type: 
  Country: None (occurrence: None)
  Receive Date: 20111026
  Receipt Date: 20111013
  Transmission Date: 20120403
  Serious: Yes (Congenital Anomaly)
  Sender: FDA-Public Use
  Company Number: GB-MYLANLABS-2011S1021449

PATIENT

DRUGS (5)
  1. QVAR 40 [Concomitant]
     Indication: ASTHMA
     Route: 055
     Dates: start: 20101206
  2. LEVOTHYROXINE SODIUM [Concomitant]
     Indication: HYPOTHYROIDISM
     Route: 048
     Dates: start: 20100101
  3. FLUOXETINE [Suspect]
     Route: 064
     Dates: start: 20100128, end: 20110819
  4. FERROUS FUMARATE [Concomitant]
     Indication: ANAEMIA
     Route: 048
  5. SULFASALAZINE [Concomitant]
     Indication: ARTHROPATHY
     Route: 064
     Dates: start: 20100113

REACTIONS (3)
  - MATERNAL EXPOSURE DURING PREGNANCY [None]
  - MATERNAL DRUGS AFFECTING FOETUS [None]
  - CLEFT PALATE [None]
